FAERS Safety Report 4538178-1 (Version None)
Quarter: 2004Q4

REPORT INFORMATION
  Report Type: 
  Country: None (occurrence: None)
  Receive Date: 20041227
  Receipt Date: 20041215
  Transmission Date: 20050328
  Serious: Yes (Life-Threatening, Hospitalization, Disabling, Other)
  Sender: FDA-Public Use
  Company Number: GB-BRISTOL-MYERS SQUIBB COMPANY-12795969

PATIENT
  Age: 41 Year
  Sex: Female
  Weight: 82 kg

DRUGS (5)
  1. ABILIFY [Suspect]
     Indication: SCHIZOPHRENIA
     Route: 048
     Dates: start: 20041028, end: 20041129
  2. CHLORPROMAZINE [Concomitant]
     Indication: SCHIZOPHRENIA
     Dates: start: 20041115, end: 20041129
  3. DIAZEPAM [Concomitant]
     Indication: ANXIETY
     Dates: start: 20041115
  4. LORMETAZEPAM [Concomitant]
     Indication: INSOMNIA
  5. QUETIAPINE [Concomitant]
     Indication: SCHIZOPHRENIA
     Dates: start: 20040419, end: 20041028

REACTIONS (5)
  - DECREASED APPETITE [None]
  - HALLUCINATION [None]
  - HOSTILITY [None]
  - MANIA [None]
  - SUSPICIOUSNESS [None]
